FAERS Safety Report 7505870 (Version 4)
Quarter: 2019Q1

REPORT INFORMATION
  Report Type: Spontaneous
  Country: ES (occurrence: ES)
  Receive Date: 20100728
  Receipt Date: 20190220
  Transmission Date: 20190418
  Serious: Yes (Other)
  Sender: FDA-Public Use
  Company Number: ES-PFIZER INC-2010088824

PATIENT
  Age: 59 Year
  Sex: Male

DRUGS (1)
  1. LYRICA [Suspect]
     Active Substance: PREGABALIN
     Indication: NECK PAIN
     Dosage: 150 MG, 2X/DAY
     Route: 065
     Dates: start: 20100218, end: 20100301

REACTIONS (3)
  - Dyspnoea [Unknown]
  - Nasal congestion [Unknown]
  - Aphasia [Unknown]

NARRATIVE: CASE EVENT DATE: 2010
